FAERS Safety Report 18647068 (Version 1)
Quarter: 2020Q4

REPORT INFORMATION
  Report Type: Report from Study
  Country: None (occurrence: US)
  Receive Date: 20201221
  Receipt Date: 20201221
  Transmission Date: 20210114
  Serious: Yes (Other)
  Sender: FDA-Public Use
  Company Number: US-ABBVIE-20K-163-3644166-00

PATIENT
  Age: 53 Year
  Sex: Male

DRUGS (1)
  1. HUMIRA [Suspect]
     Active Substance: ADALIMUMAB
     Indication: COLITIS ULCERATIVE
     Dosage: CITRATE FREE
     Route: 058

REACTIONS (11)
  - Scratch [Not Recovered/Not Resolved]
  - Scab [Not Recovered/Not Resolved]
  - Skin weeping [Not Recovered/Not Resolved]
  - Diabetic ketoacidosis [Recovering/Resolving]
  - Rash pruritic [Recovered/Resolved]
  - Malaise [Recovering/Resolving]
  - Rash [Recovered/Resolved]
  - Dehydration [Recovering/Resolving]
  - Diabetes mellitus [Recovering/Resolving]
  - COVID-19 [Recovering/Resolving]
  - Subcutaneous abscess [Recovered/Resolved]

NARRATIVE: CASE EVENT DATE: 2020
